FAERS Safety Report 18711306 (Version 3)
Quarter: 2022Q1

REPORT INFORMATION
  Report Type: Spontaneous
  Country: US (occurrence: US)
  Receive Date: 20210107
  Receipt Date: 20220316
  Transmission Date: 20220423
  Serious: Yes (Other)
  Sender: FDA-Public Use
  Company Number: US-GLAXOSMITHKLINE-US2021GSK002307

PATIENT
  Sex: Male

DRUGS (16)
  1. RANITIDINE [Suspect]
     Active Substance: RANITIDINE
     Indication: Gastrooesophageal reflux disease
     Dosage: 150 MG, QD
     Route: 065
     Dates: start: 201301, end: 202004
  2. RANITIDINE [Suspect]
     Active Substance: RANITIDINE
     Dosage: UNK
  3. RANITIDINE [Suspect]
     Active Substance: RANITIDINE
     Dosage: UNK
  4. RANITIDINE [Suspect]
     Active Substance: RANITIDINE
     Dosage: UNK
  5. ZANTAC [Suspect]
     Active Substance: RANITIDINE HYDROCHLORIDE
     Indication: Gastrooesophageal reflux disease
     Dosage: 75 MG OVER THE COUNTER
     Route: 065
     Dates: start: 201101, end: 202004
  6. ZANTAC [Suspect]
     Active Substance: RANITIDINE HYDROCHLORIDE
     Dosage: 150 MG OVER THE COUNTER
     Route: 065
     Dates: start: 201101, end: 202004
  7. ZANTAC [Suspect]
     Active Substance: RANITIDINE HYDROCHLORIDE
     Dosage: 75 MG OVER THE COUNTER
     Route: 065
     Dates: start: 201101, end: 202004
  8. ZANTAC [Suspect]
     Active Substance: RANITIDINE HYDROCHLORIDE
     Dosage: 150 MG, QD
     Route: 065
     Dates: start: 201101, end: 202004
  9. RANITIDINE [Suspect]
     Active Substance: RANITIDINE
     Indication: Gastrooesophageal reflux disease
     Dosage: 75 MG OVER THE COUNTER
     Route: 065
     Dates: start: 201101, end: 202004
  10. RANITIDINE [Suspect]
     Active Substance: RANITIDINE
     Dosage: 150 MG OVER THE COUNTER
     Route: 065
     Dates: start: 201101, end: 202004
  11. RANITIDINE [Suspect]
     Active Substance: RANITIDINE
     Dosage: 75 MG OVER THE COUNTER
     Route: 065
     Dates: start: 201101, end: 202004
  12. RANITIDINE [Suspect]
     Active Substance: RANITIDINE
     Dosage: 150 MG, QD
     Route: 065
     Dates: start: 201101, end: 202004
  13. RANITIDINE [Suspect]
     Active Substance: RANITIDINE
     Indication: Gastrooesophageal reflux disease
     Dosage: 150 MG, QD
     Route: 065
     Dates: start: 201301, end: 202004
  14. RANITIDINE [Suspect]
     Active Substance: RANITIDINE
     Dosage: UNK
  15. RANITIDINE [Suspect]
     Active Substance: RANITIDINE
     Dosage: 150 MG, QD
     Route: 065
     Dates: start: 201301, end: 202004
  16. RANITIDINE [Suspect]
     Active Substance: RANITIDINE
     Dosage: UNK

REACTIONS (1)
  - Oesophageal carcinoma [Unknown]
